FAERS Safety Report 23716713 (Version 6)
Quarter: 2024Q4

REPORT INFORMATION
  Report Type: Spontaneous
  Country: US (occurrence: US)
  Receive Date: 20240408
  Receipt Date: 20241014
  Transmission Date: 20250114
  Serious: Yes (Hospitalization, Other)
  Sender: UCB
  Company Number: US-UCBSA-2023048553

PATIENT
  Sex: Female
  Weight: 103.4 kg

DRUGS (5)
  1. CIMZIA [Suspect]
     Active Substance: CERTOLIZUMAB PEGOL
     Indication: Rheumatoid arthritis
     Dosage: 400 MILLIGRAM, EV 4 WEEKS (2 SYRINGES)
     Route: 058
     Dates: start: 202309
  2. CIMZIA [Suspect]
     Active Substance: CERTOLIZUMAB PEGOL
     Dosage: OVERDOSE
     Route: 058
     Dates: end: 2024
  3. LAMOTRIGINE [Concomitant]
     Active Substance: LAMOTRIGINE
     Indication: Product used for unknown indication
     Dosage: UNK
  4. PREDNISONE [Concomitant]
     Active Substance: PREDNISONE
     Indication: Product used for unknown indication
     Dosage: UNK
     Dates: start: 20240506, end: 2024
  5. PERI-COLACE [Concomitant]
     Active Substance: CASANTHRANOL\DOCUSATE SODIUM
     Indication: Product used for unknown indication
     Dosage: UNK

REACTIONS (12)
  - Pulmonary congestion [Unknown]
  - Hospitalisation [Unknown]
  - Urinary tract infection [Unknown]
  - Inflammation [Recovering/Resolving]
  - Sinus congestion [Unknown]
  - Sinusitis [Unknown]
  - Nasopharyngitis [Unknown]
  - Rash [Unknown]
  - Chronic obstructive pulmonary disease [Unknown]
  - Blood sodium decreased [Unknown]
  - Product availability issue [Unknown]
  - Overdose [Unknown]

NARRATIVE: CASE EVENT DATE: 20230101
